FAERS Safety Report 7088621-1 (Version None)
Quarter: 2010Q4

REPORT INFORMATION
  Report Type: 
  Country: None (occurrence: None)
  Receive Date: 20101029
  Receipt Date: 20101021
  Transmission Date: 20110411
  Serious: Yes (Hospitalization)
  Sender: FDA-Public Use
  Company Number: DKLU1065041

PATIENT
  Age: 11 Year
  Sex: Female

DRUGS (2)
  1. SABRIL [Suspect]
     Indication: CONVULSION
     Dosage: 750 MG MILLIGRAM(S), 2 IN 1 D, ORAL, 1000 MG MILLIGRAM(S), 2 IN 1 D, ORAL
     Route: 048
     Dates: start: 20100801, end: 20100101
  2. SABRIL [Suspect]
     Indication: CONVULSION
     Dosage: 750 MG MILLIGRAM(S), 2 IN 1 D, ORAL, 1000 MG MILLIGRAM(S), 2 IN 1 D, ORAL
     Route: 048
     Dates: start: 20100730, end: 20100801

REACTIONS (2)
  - GASTRIC DISORDER [None]
  - IRRITABILITY [None]
